FAERS Safety Report 4533936-1 (Version None)
Quarter: 2004Q4

REPORT INFORMATION
  Report Type: 
  Country: None (occurrence: None)
  Receive Date: 20041208
  Receipt Date: 20031029
  Transmission Date: 20050328
  Serious: Yes (Other)
  Sender: FDA-Public Use
  Company Number: 200313366GDS

PATIENT
  Age: 56 Year
  Sex: Female

DRUGS (1)
  1. KETOPROFEN [Suspect]
     Indication: OSTEOARTHRITIS

REACTIONS (1)
  - LARGE INTESTINAL ULCER [None]
